FAERS Safety Report 15357287 (Version 3)
Quarter: 2018Q3

REPORT INFORMATION
  Report Type: Spontaneous
  Country: IR (occurrence: IR)
  Receive Date: 20180906
  Receipt Date: 20180925
  Transmission Date: 20181010
  Serious: Yes (Death, Other)
  Sender: FDA-Public Use
  Company Number: IR-SA-2018SA241643

PATIENT
  Age: 48 Year
  Sex: Male

DRUGS (16)
  1. NAC [ACETYLCYSTEINE] [Concomitant]
  2. SANDIMMUN [Concomitant]
     Active Substance: CYCLOSPORINE
  3. VENOFER [Concomitant]
     Active Substance: IRON SUCROSE
  4. ALPRAZOLAM. [Concomitant]
     Active Substance: ALPRAZOLAM
  5. VITAMIN B6 [Concomitant]
     Active Substance: PYRIDOXINE HYDROCHLORIDE
  6. LACTULOSE. [Concomitant]
     Active Substance: LACTULOSE
  7. THYMOGLOBULIN [Suspect]
     Active Substance: LAPINE T-LYMPHOCYTE IMMUNE GLOBULIN
     Indication: RENAL TRANSPLANT
     Dosage: TOTAL 3?4 MG/KG
     Route: 042
     Dates: start: 20180816, end: 20180820
  8. AMLODIPINE [Concomitant]
     Active Substance: AMLODIPINE BESYLATE
     Indication: BLOOD PRESSURE MEASUREMENT
  9. COTRIMOXAZOLE [Concomitant]
     Active Substance: SULFAMETHOXAZOLE\TRIMETHOPRIM
  10. PANTOPRAZOLE [Concomitant]
     Active Substance: PANTOPRAZOLE
  11. CELLCEPT [MYCOPHENOLATE MOFETIL HYDROCHLORIDE] [Concomitant]
  12. LOSARTAN. [Concomitant]
     Active Substance: LOSARTAN
     Indication: CARDIAC DISORDER
  13. MEROPENEM. [Concomitant]
     Active Substance: MEROPENEM
  14. ISONIAZID. [Concomitant]
     Active Substance: ISONIAZID
     Indication: BLOOD PRESSURE MEASUREMENT
  15. VALCYTE [Concomitant]
     Active Substance: VALGANCICLOVIR HYDROCHLORIDE
  16. MYFORTIC [Concomitant]
     Active Substance: MYCOPHENOLATE SODIUM

REACTIONS (14)
  - Respiratory distress [Unknown]
  - Vasospasm [Recovered/Resolved]
  - Tachycardia [Unknown]
  - Tachypnoea [Unknown]
  - Hypertension [Unknown]
  - Cardio-respiratory arrest [Unknown]
  - Haemodynamic instability [Unknown]
  - Dyspnoea [Unknown]
  - Hypotension [Unknown]
  - Pulmonary embolism [Unknown]
  - Death [Fatal]
  - Bronchospasm [Unknown]
  - Urticaria [Unknown]
  - Abdominal pain [Recovered/Resolved]

NARRATIVE: CASE EVENT DATE: 201808
